FAERS Safety Report 4391094-0 (Version None)
Quarter: 2004Q2

REPORT INFORMATION
  Report Type: 
  Country: None (occurrence: None)
  Receive Date: 20040621
  Receipt Date: 20031210
  Transmission Date: 20050107
  Serious: Yes (Hospitalization, Other)
  Sender: FDA-Public Use
  Company Number: USA-2003-0009432

PATIENT
  Age: 40 Year
  Sex: Male

DRUGS (1)
  1. OXYCONTIN [Suspect]
     Indication: CANCER PAIN
     Dosage: 10 MG, UNK, ORAL
     Route: 048

REACTIONS (27)
  - ANGER [None]
  - ANOREXIA [None]
  - COGNITIVE DISORDER [None]
  - CONVULSION [None]
  - CRYING [None]
  - DEPRESSION [None]
  - DIARRHOEA [None]
  - DISTURBANCE IN ATTENTION [None]
  - DRUG ABUSER [None]
  - DRUG DEPENDENCE [None]
  - DRUG INEFFECTIVE [None]
  - DRUG TOLERANCE [None]
  - DRUG WITHDRAWAL SYNDROME [None]
  - DYSPEPSIA [None]
  - DYSPHORIA [None]
  - FLUSHING [None]
  - ILL-DEFINED DISORDER [None]
  - INSOMNIA [None]
  - JUDGEMENT IMPAIRED [None]
  - MUSCLE TWITCHING [None]
  - NERVOUSNESS [None]
  - PAIN [None]
  - PRESSURE OF SPEECH [None]
  - RASH [None]
  - RESTLESSNESS [None]
  - SUICIDAL IDEATION [None]
  - VOMITING [None]
